FAERS Safety Report 8307089-8 (Version None)
Quarter: 2012Q2

REPORT INFORMATION
  Report Type: 
  Country: None (occurrence: None)
  Receive Date: 20120424
  Receipt Date: 20120418
  Transmission Date: 20120825
  Serious: Yes (Other)
  Sender: FDA-Public Use
  Company Number: US-PFIZER INC-2008158467

PATIENT
  Sex: Male
  Weight: 83.914 kg

DRUGS (5)
  1. LYRICA [Suspect]
     Dosage: 225 MG, 2X/DAY
     Dates: end: 20120207
  2. LYRICA [Suspect]
     Indication: NERVE INJURY
     Dosage: 150 MG, 2X/DAY
     Dates: start: 20080101, end: 20081219
  3. XANAX [Concomitant]
     Indication: ANXIETY
     Dosage: 0.5 MG, 4X/DAY
  4. PERCOCET [Concomitant]
     Dosage: 10-325 MG AS NEEDED THREE TIMES DAILY
  5. BUTRANS [Concomitant]
     Dosage: 5 MCG/HR, WEEKLY
     Dates: end: 20120207

REACTIONS (18)
  - NAUSEA [None]
  - DISCOMFORT [None]
  - TRIGGER FINGER [None]
  - NEURITIS [None]
  - RADICULITIS [None]
  - MALAISE [None]
  - HOT FLUSH [None]
  - NERVOUSNESS [None]
  - PAIN IN EXTREMITY [None]
  - NEURALGIA [None]
  - ANXIETY [None]
  - HEADACHE [None]
  - PAIN [None]
  - FEELING ABNORMAL [None]
  - RENAL PAIN [None]
  - RASH PRURITIC [None]
  - WITHDRAWAL SYNDROME [None]
  - BURNING SENSATION [None]
